FAERS Safety Report 6099606-6 (Version None)
Quarter: 2009Q1

REPORT INFORMATION
  Report Type: 
  Country: None (occurrence: None)
  Receive Date: 20090226
  Receipt Date: 20090217
  Transmission Date: 20090719
  Serious: Yes (Other)
  Sender: FDA-Public Use
  Company Number: 2009-00170FE

PATIENT
  Age: 41 Year
  Sex: Female

DRUGS (5)
  1. ZOMACTON (ZOMACTON) (SOMATROPIN) [Suspect]
     Indication: HYPOPITUITARISM
     Dosage: 0.6 IU
     Dates: start: 20050201, end: 20060401
  2. ZOMACTON (ZOMACTON) (SOMATROPIN) [Suspect]
     Indication: HYPOPITUITARISM
     Dosage: 0.6 IU
     Dates: start: 20041201, end: 20060401
  3. INSULIN [Concomitant]
  4. HYDROCORTISONE [Concomitant]
  5. LEVOTHYROXINE SODIUM [Concomitant]

REACTIONS (2)
  - CONDITION AGGRAVATED [None]
  - DIABETIC RETINOPATHY [None]
